FAERS Safety Report 9081418 (Version 2)
Quarter: 2013Q2

REPORT INFORMATION
  Report Type: Spontaneous
  Country: US (occurrence: US)
  Receive Date: 20130218
  Receipt Date: 20130422
  Transmission Date: 20140414
  Serious: Yes (Other)
  Sender: FDA-Public Use
  Company Number: US-PFIZER INC-2011079957

PATIENT
  Age: 46 Year
  Sex: Female
  Weight: 100 kg

DRUGS (9)
  1. ZOLOFT [Suspect]
     Indication: DEPRESSION
     Dosage: 100 MG, 1X/DAY
  2. EFFEXOR [Suspect]
     Indication: DEPRESSION
     Dosage: UNK
  3. GENURIN [Concomitant]
     Indication: BLADDER DISORDER
     Dosage: 10 MG, AS NEEDED
  4. BACLOFEN [Concomitant]
     Indication: MUSCLE SPASMS
     Dosage: 10 MG, 2X/DAY, AS NEEDED
  5. BACLOFEN [Concomitant]
     Indication: BACK PAIN
  6. SANCTURA [Concomitant]
     Indication: BLADDER DISORDER
     Dosage: 10 MG, UNK
  7. B 12 [Concomitant]
     Indication: FATIGUE
     Dosage: UNK, DAILY
     Route: 060
  8. GINKGO BILOBA [Concomitant]
     Indication: AMNESIA
     Dosage: 60 MG DAILY
  9. EVENING PRIMROSE [Concomitant]
     Indication: HOT FLUSH
     Dosage: 1300 MG DAILY

REACTIONS (2)
  - Convulsion [Unknown]
  - Somnolence [Not Recovered/Not Resolved]
